FAERS Safety Report 21812415 (Version 1)
Quarter: 2023Q1

REPORT INFORMATION
  Report Type: Spontaneous
  Country: US (occurrence: US)
  Receive Date: 20230103
  Receipt Date: 20230103
  Transmission Date: 20230417
  Serious: Yes (Hospitalization)
  Sender: FDA-Public Use
  Company Number: US-SIGMAPHARM LABORATORIES, LLC-2022SIG00069

PATIENT

DRUGS (1)
  1. PROTRIPTYLINE HYDROCHLORIDE [Suspect]
     Active Substance: PROTRIPTYLINE HYDROCHLORIDE
     Dosage: UNK

REACTIONS (1)
  - Hospitalisation [Unknown]
